FAERS Safety Report 11291860 (Version 1)
Quarter: 2015Q3

REPORT INFORMATION
  Report Type: Spontaneous
  Country: US (occurrence: None)
  Receive Date: 20150721
  Receipt Date: 20150721
  Transmission Date: 20151125
  Serious: No
  Sender: FDA-Public Use
  Company Number: None

PATIENT
  Age: 63 Year
  Sex: Female
  Weight: 56.25 kg

DRUGS (1)
  1. ALIMTA [Suspect]
     Active Substance: PEMETREXED DISODIUM
     Indication: MALIGNANT PERITONEAL NEOPLASM
     Dosage: 830 MG IN 0.9% NAC1, 143.2ML 21 DAY CYCLE
     Route: 042
     Dates: start: 20150518

REACTIONS (1)
  - Eyelid oedema [None]

NARRATIVE: CASE EVENT DATE: 20150720
